FAERS Safety Report 13041264 (Version 1)
Quarter: 2016Q4

REPORT INFORMATION
  Report Type: Spontaneous
  Country: JP (occurrence: JP)
  Receive Date: 20161219
  Receipt Date: 20161219
  Transmission Date: 20170207
  Serious: Yes (Other)
  Sender: FDA-Public Use
  Company Number: JP-ELI_LILLY_AND_COMPANY-JP201612003101

PATIENT
  Age: 75 Year
  Sex: Male
  Weight: 53 kg

DRUGS (1)
  1. GEMZAR [Suspect]
     Active Substance: GEMCITABINE HYDROCHLORIDE
     Indication: MALIGNANT NEOPLASM PAPILLA OF VATER
     Dosage: 1000 MG/M2, UNK
     Route: 042

REACTIONS (4)
  - Diabetes mellitus [Recovering/Resolving]
  - Intestinal obstruction [Recovering/Resolving]
  - Rheumatoid arthritis [Unknown]
  - Actinomycosis [Recovered/Resolved]
